FAERS Safety Report 9658668 (Version 1)
Quarter: 2013Q4

REPORT INFORMATION
  Report Type: Spontaneous
  Country: US (occurrence: US)
  Receive Date: 20131030
  Receipt Date: 20131030
  Transmission Date: 20140711
  Serious: Yes (Other)
  Sender: FDA-Public Use
  Company Number: US-NAPPMUNDI-USA-2011-0078124

PATIENT
  Age: 25 Year
  Sex: Female

DRUGS (2)
  1. OXYCODONE HYDROCHLORIDE (SIMILAR TO NDA 22-272) [Suspect]
     Indication: DRUG ABUSE
  2. CARISOPRODOL [Suspect]
     Indication: DRUG ABUSE

REACTIONS (6)
  - Drug abuse [Unknown]
  - Slow response to stimuli [Unknown]
  - Balance disorder [Unknown]
  - Distractibility [Unknown]
  - Impaired driving ability [Unknown]
  - Dysarthria [Unknown]
